FAERS Safety Report 17523534 (Version 4)
Quarter: 2022Q1

REPORT INFORMATION
  Report Type: Spontaneous
  Country: GB (occurrence: GB)
  Receive Date: 20200311
  Receipt Date: 20220128
  Transmission Date: 20220423
  Serious: Yes (Life-Threatening, Hospitalization, Disabling, Other)
  Sender: FDA-Public Use
  Company Number: None

PATIENT
  Age: 50 Year
  Sex: Female

DRUGS (4)
  1. VENLAFAXINE [Suspect]
     Active Substance: VENLAFAXINE HYDROCHLORIDE
     Indication: Depression
     Dosage: 150 MILLIGRAM DAILY; DISCONTINUED THEN REINTRODUCED AT REDUCED DOSE ON PSYCHIATRY ADVICE, 150 MG
     Route: 048
  2. VENLAFAXINE [Suspect]
     Active Substance: VENLAFAXINE HYDROCHLORIDE
     Dosage: 75 MILLIGRAM DAILY; DISCONTINUED THEN REINTRODUCED AT REDUCED DOSE ON PSYCHIATRY ADVICE
     Route: 048
  3. BALSALAZIDE [Suspect]
     Active Substance: BALSALAZIDE
     Indication: Colitis ulcerative
     Dosage: 2.25 GRAM DAILY;  3 CAPSULES ONCE DAILY
     Route: 048
  4. TRIMETHOPRIM [Concomitant]
     Active Substance: TRIMETHOPRIM
     Dosage: 3 DAY COURSE
     Dates: start: 20191204

REACTIONS (7)
  - Effusion [Unknown]
  - Left ventricular dysfunction [Not Recovered/Not Resolved]
  - Chest discomfort [Unknown]
  - Dyspnoea [Unknown]
  - Nausea [Unknown]
  - Cardiac failure [Not Recovered/Not Resolved]
  - Congestive cardiomyopathy [Not Recovered/Not Resolved]

NARRATIVE: CASE EVENT DATE: 20200108
